FAERS Safety Report 20613015 (Version 1)
Quarter: 2022Q1

REPORT INFORMATION
  Report Type: Spontaneous
  Country: DE (occurrence: DE)
  Receive Date: 20220318
  Receipt Date: 20220318
  Transmission Date: 20220423
  Serious: No
  Sender: FDA-Public Use
  Company Number: DE-009507513-2201DEU008244

PATIENT

DRUGS (1)
  1. MOLNUPIRAVIR [Suspect]
     Active Substance: MOLNUPIRAVIR
     Dosage: UNK
     Route: 048
     Dates: start: 20220122

REACTIONS (5)
  - Product physical issue [Unknown]
  - Product packaging quantity issue [Unknown]
  - Incorrect dose administered [Unknown]
  - Poor quality product administered [Unknown]
  - No adverse event [Unknown]

NARRATIVE: CASE EVENT DATE: 20220101
